FAERS Safety Report 14954238 (Version 2)
Quarter: 2018Q2

REPORT INFORMATION
  Report Type: Spontaneous
  Country: US (occurrence: US)
  Receive Date: 20180530
  Receipt Date: 20180531
  Transmission Date: 20180711
  Serious: Yes (Life-Threatening, Other)
  Sender: FDA-Public Use
  Company Number: US-PFIZER INC-2018023980

PATIENT
  Sex: Male

DRUGS (2)
  1. AMIODARONE HCL [Suspect]
     Active Substance: AMIODARONE HYDROCHLORIDE
     Indication: ATRIAL FIBRILLATION
     Dosage: 200 MG, UNK
     Dates: start: 201503
  2. AMIODARONE /00133102/ [Suspect]
     Active Substance: AMIODARONE
     Indication: ATRIAL FIBRILLATION
     Dosage: 200 MG, UNK

REACTIONS (9)
  - Blindness unilateral [Unknown]
  - Fatigue [Unknown]
  - Blindness [Unknown]
  - Coordination abnormal [Unknown]
  - Loss of personal independence in daily activities [Unknown]
  - Optic ischaemic neuropathy [Unknown]
  - Anxiety [Unknown]
  - Keratopathy [Unknown]
  - Cataract [Unknown]

NARRATIVE: CASE EVENT DATE: 201511
